FAERS Safety Report 6401682-5 (Version None)
Quarter: 2009Q4

REPORT INFORMATION
  Report Type: 
  Country: None (occurrence: None)
  Receive Date: 20091015
  Receipt Date: 20091005
  Transmission Date: 20100525
  Serious: Yes (Hospitalization)
  Sender: FDA-Public Use
  Company Number: US-ELI_LILLY_AND_COMPANY-US200910000918

PATIENT
  Sex: Female

DRUGS (1)
  1. FORTEO [Suspect]
     Dates: start: 20080101

REACTIONS (4)
  - DEHYDRATION [None]
  - DRUG DOSE OMISSION [None]
  - FEELING ABNORMAL [None]
  - MOBILITY DECREASED [None]
